FAERS Safety Report 8072591-3 (Version None)
Quarter: 2012Q1

REPORT INFORMATION
  Report Type: 
  Country: None (occurrence: None)
  Receive Date: 20120126
  Receipt Date: 20120111
  Transmission Date: 20120608
  Serious: Yes (Death)
  Sender: FDA-Public Use
  Company Number: DE-CELGENEUS-062-50794-12011155

PATIENT
  Age: 64 Year
  Sex: Male
  Weight: 90 kg

DRUGS (1)
  1. VIDAZA [Suspect]
     Dosage: 75 MILLIGRAM/SQ. METER
     Route: 058
     Dates: start: 20100912, end: 20101201

REACTIONS (4)
  - ACUTE MYELOID LEUKAEMIA RECURRENT [None]
  - SEPSIS [None]
  - NEUTROPENIA [None]
  - OSTEOMYELITIS [None]
